FAERS Safety Report 5811475-5 (Version None)
Quarter: 2008Q3

REPORT INFORMATION
  Report Type: 
  Country: None (occurrence: None)
  Receive Date: 20080714
  Receipt Date: 20080611
  Transmission Date: 20090109
  Serious: Yes (Hospitalization)
  Sender: FDA-Public Use
  Company Number: PHFR2008GB01460

PATIENT
  Age: 58 Year
  Sex: Male

DRUGS (4)
  1. CLOZARIL [Suspect]
     Indication: SCHIZOPHRENIA
     Dosage: 500MG/DAY, ORAL
     Route: 048
     Dates: start: 20080121
  2. OLANZAPINE [Concomitant]
  3. LORAZEPAM [Concomitant]
  4. HYOSCINE HBR HYT [Concomitant]

REACTIONS (5)
  - DIZZINESS [None]
  - FATIGUE [None]
  - HYPOTENSION [None]
  - PALLOR [None]
  - SOMNOLENCE [None]
